FAERS Safety Report 5274003-1 (Version None)
Quarter: 2007Q1

REPORT INFORMATION
  Report Type: 
  Country: None (occurrence: None)
  Receive Date: 20070323
  Receipt Date: 20070315
  Transmission Date: 20070707
  Serious: Yes (Other)
  Sender: FDA-Public Use
  Company Number: GB-GLAXOSMITHKLINE-B0462050A

PATIENT
  Age: 8 Year
  Sex: Male

DRUGS (12)
  1. FORTUM [Suspect]
     Indication: PSEUDOMONAS INFECTION
     Dosage: 1.2G THREE TIMES PER DAY
     Route: 065
  2. TOBRAMYCIN [Concomitant]
     Indication: PSEUDOMONAS INFECTION
     Dosage: 136MG THREE TIMES PER DAY
     Route: 042
  3. OMEPRAZOLE [Concomitant]
     Dosage: 20MG PER DAY
     Route: 065
  4. FLUCLOXACILLIN [Concomitant]
     Dosage: 500MG THREE TIMES PER DAY
     Route: 065
  5. VITAMIN A + D [Concomitant]
     Dosage: 2CAP PER DAY
     Route: 065
  6. VITAMIN E [Concomitant]
     Dosage: 75UNIT PER DAY
     Route: 065
  7. VITAMIN K [Concomitant]
     Dosage: 10MG PER DAY
     Route: 048
  8. KETOVITE [Concomitant]
     Dosage: 1TAB THREE TIMES PER DAY
     Route: 065
  9. PULMOZYME [Concomitant]
     Dosage: 2.5MG PER DAY
     Route: 065
  10. COLOMYCIN [Concomitant]
     Route: 065
  11. BECLOMETHASONE DIPROPIONATE [Concomitant]
     Dosage: 100MCG TWICE PER DAY
     Route: 065
  12. SALBUTAMOL [Concomitant]
     Dosage: 200MCG TWICE PER DAY
     Route: 065

REACTIONS (4)
  - ACTIVATED PARTIAL THROMBOPLASTIN TIME PROLONGED [None]
  - ALANINE AMINOTRANSFERASE INCREASED [None]
  - BLOOD ALKALINE PHOSPHATASE INCREASED [None]
  - GAMMA-GLUTAMYLTRANSFERASE INCREASED [None]
